FAERS Safety Report 26061992 (Version 1)
Quarter: 2025Q4

REPORT INFORMATION
  Report Type: Spontaneous
  Country: GB (occurrence: GB)
  Receive Date: 20251119
  Receipt Date: 20251119
  Transmission Date: 20260118
  Serious: Yes (Hospitalization, Other)
  Sender: GENMAB
  Company Number: GB-ABBVIE-6482646

PATIENT
  Age: 67 Year
  Sex: Male

DRUGS (2)
  1. EPCORITAMAB [Suspect]
     Active Substance: EPCORITAMAB
     Indication: Diffuse large B-cell lymphoma
     Dosage: UNK (CYCLE 1)
     Route: 042
     Dates: start: 20250829, end: 202509
  2. EPCORITAMAB [Suspect]
     Active Substance: EPCORITAMAB
     Dosage: UNK (CYCLE 2)
     Route: 042
     Dates: start: 20250926

REACTIONS (2)
  - Neoplasm progression [Recovered/Resolved]
  - Cytokine release syndrome [Recovered/Resolved]

NARRATIVE: CASE EVENT DATE: 20250101
